FAERS Safety Report 25364686 (Version 2)
Quarter: 2025Q3

REPORT INFORMATION
  Report Type: Spontaneous
  Country: US (occurrence: US)
  Receive Date: 20250527
  Receipt Date: 20250813
  Transmission Date: 20251021
  Serious: No
  Sender: JOHNSON AND JOHNSON
  Company Number: US-JNJFOC-20250528494

PATIENT

DRUGS (1)
  1. RYBREVANT [Suspect]
     Active Substance: AMIVANTAMAB-VMJW
     Indication: Non-small cell lung cancer metastatic
     Route: 065

REACTIONS (2)
  - Eyelid rash [Recovering/Resolving]
  - Eyelid discolouration [Recovering/Resolving]

NARRATIVE: CASE EVENT DATE: 20250521
